FAERS Safety Report 4673085-5 (Version None)
Quarter: 2005Q2

REPORT INFORMATION
  Report Type: 
  Country: None (occurrence: None)
  Receive Date: 20050524
  Receipt Date: 20050524
  Transmission Date: 20051028
  Serious: No
  Sender: FDA-Public Use
  Company Number: None

PATIENT
  Sex: Female
  Weight: 47.6277 kg

DRUGS (4)
  1. ZOLOFT [Suspect]
     Indication: DEPRESSION
     Dosage: 1X DAILY  TABLET ORAL
     Route: 048
     Dates: start: 20040601, end: 20040901
  2. ZOLOFT [Suspect]
     Indication: SUICIDAL IDEATION
     Dosage: 1X DAILY  TABLET ORAL
     Route: 048
     Dates: start: 20040601, end: 20040901
  3. NAPROXEN [Suspect]
     Indication: CARPAL TUNNEL SYNDROME
     Dosage: 2X DAILY  CAPLET ORAL
     Route: 048
     Dates: start: 20050511, end: 20050520
  4. NAPROXEN [Suspect]
     Indication: INFLAMMATION
     Dosage: 2X DAILY  CAPLET ORAL
     Route: 048
     Dates: start: 20050511, end: 20050520

REACTIONS (9)
  - DRY SKIN [None]
  - ERYTHEMA [None]
  - FEELING ABNORMAL [None]
  - HAIR TEXTURE ABNORMAL [None]
  - IRRITABILITY [None]
  - RASH MACULAR [None]
  - SKIN BURNING SENSATION [None]
  - SKIN EXFOLIATION [None]
  - THIRST [None]
